FAERS Safety Report 11534747 (Version 3)
Quarter: 2015Q4

REPORT INFORMATION
  Report Type: Report from Study
  Country: US (occurrence: US)
  Receive Date: 20150922
  Receipt Date: 20151116
  Transmission Date: 20160304
  Serious: Yes (Other)
  Sender: FDA-Public Use
  Company Number: US-AMGEN-USASP2015096940

PATIENT
  Age: 60 Year
  Sex: Female

DRUGS (1)
  1. ENBREL [Suspect]
     Active Substance: ETANERCEPT
     Indication: PSORIATIC ARTHROPATHY
     Dosage: 50 MG, QWK
     Route: 065
     Dates: start: 20150807, end: 20151030

REACTIONS (8)
  - Lung disorder [Unknown]
  - Renal disorder [Unknown]
  - Respiratory muscle weakness [Unknown]
  - Drug ineffective [Not Recovered/Not Resolved]
  - Device issue [Unknown]
  - Cardiac disorder [Unknown]
  - Sjogren^s syndrome [Unknown]
  - Neuropathy peripheral [Unknown]

NARRATIVE: CASE EVENT DATE: 2015
